FAERS Safety Report 7490180-6 (Version None)
Quarter: 2011Q2

REPORT INFORMATION
  Report Type: 
  Country: None (occurrence: None)
  Receive Date: 20110519
  Receipt Date: 20110406
  Transmission Date: 20111010
  Serious: Yes (Other)
  Sender: FDA-Public Use
  Company Number: US-BAYER-201041522NA

PATIENT
  Age: 22 Year
  Sex: Female
  Weight: 108.84 kg

DRUGS (7)
  1. ALBUTEROL [Concomitant]
     Indication: ASTHMA
  2. ADVAIR DISKUS 100/50 [Concomitant]
     Indication: ASTHMA
  3. PRILOSEC [Concomitant]
  4. YASMIN [Suspect]
     Indication: CONTRACEPTION
     Dosage: UNK
     Dates: start: 20050101, end: 20090101
  5. YASMIN [Suspect]
     Indication: MENSTRUATION IRREGULAR
  6. SINGULAIR [Concomitant]
  7. DROSPIRENONE AND ETHINYL ESTRADIOL [Suspect]
     Dosage: UNK
     Dates: start: 20050101, end: 20090101

REACTIONS (2)
  - GALLBLADDER DISORDER [None]
  - CHOLELITHIASIS [None]
